FAERS Safety Report 10179157 (Version 1)
Quarter: 2014Q2

REPORT INFORMATION
  Report Type: Report from Study
  Country: US (occurrence: US)
  Receive Date: 20140519
  Receipt Date: 20140519
  Transmission Date: 20141212
  Serious: Yes (Other)
  Sender: FDA-Public Use
  Company Number: US-MYLANLABS-2014S1008476

PATIENT
  Age: 20 Year
  Sex: Female
  Weight: 73.94 kg

DRUGS (2)
  1. AMNESTEEM CAPSULES [Suspect]
     Indication: ACNE
     Dates: start: 20140304, end: 20140315
  2. MIRENA [Concomitant]
     Dosage: 20UG/QD INTRAUTERINE DEVICE
     Dates: start: 20130912

REACTIONS (3)
  - Suicidal ideation [Recovered/Resolved]
  - Depression [Recovering/Resolving]
  - Panic attack [Recovered/Resolved]
